FAERS Safety Report 8048256-0 (Version None)
Quarter: 2011Q4

REPORT INFORMATION
  Report Type: 
  Country: None (occurrence: None)
  Receive Date: 20111209
  Receipt Date: 20110923
  Transmission Date: 20120403
  Serious: No
  Sender: FDA-Public Use
  Company Number: 2011SP045256

PATIENT
  Age: 57 Year
  Sex: Female

DRUGS (3)
  1. PEGASYS [Suspect]
     Indication: PRODUCT USED FOR UNKNOWN INDICATION
     Dates: start: 20110701
  2. RIBAVIRIN [Suspect]
     Indication: PRODUCT USED FOR UNKNOWN INDICATION
     Dosage: 800 MG; QD;
     Dates: start: 20110701
  3. VICTRELIS [Suspect]
     Indication: HEPATITIS C
     Dosage: 200 MCG;
     Dates: start: 20110701

REACTIONS (1)
  - HAEMOGLOBIN DECREASED [None]
